FAERS Safety Report 11520305 (Version 1)
Quarter: 2015Q3

REPORT INFORMATION
  Report Type: Spontaneous
  Country: US (occurrence: None)
  Receive Date: 20150917
  Receipt Date: 20150917
  Transmission Date: 20151125
  Serious: Yes (Disabling, Other)
  Sender: FDA-Public Use
  Company Number: None

PATIENT
  Age: 27 Year
  Sex: Male

DRUGS (1)
  1. PREDNISONE 10 MG WEST [Suspect]
     Active Substance: PREDNISONE
     Indication: NASAL INFLAMMATION
     Dosage: 3 PILLS
     Route: 048
     Dates: start: 20150911, end: 20150911

REACTIONS (6)
  - Dehydration [None]
  - Cerebral disorder [None]
  - Similar reaction on previous exposure to drug [None]
  - Sleep disorder [None]
  - Dyspnoea [None]
  - Asthenia [None]

NARRATIVE: CASE EVENT DATE: 20150911
